FAERS Safety Report 7707929-7 (Version None)
Quarter: 2011Q3

REPORT INFORMATION
  Report Type: 
  Country: None (occurrence: None)
  Receive Date: 20110824
  Receipt Date: 20110815
  Transmission Date: 20111222
  Serious: Yes (Hospitalization, Other)
  Sender: FDA-Public Use
  Company Number: US-RB-029619-11

PATIENT
  Age: 26 Year
  Sex: Female

DRUGS (1)
  1. SUBOXONE [Suspect]
     Indication: PRODUCT USED FOR UNKNOWN INDICATION
     Dosage: SUBLINGUAL FILM- DOSING INFORMATION UNKNOWN
     Route: 065

REACTIONS (6)
  - OFF LABEL USE [None]
  - KIDNEY INFECTION [None]
  - UNDERDOSE [None]
  - DEHYDRATION [None]
  - HYPERHIDROSIS [None]
  - HOT FLUSH [None]
